FAERS Safety Report 5277801-3 (Version None)
Quarter: 2007Q1

REPORT INFORMATION
  Report Type: 
  Country: None (occurrence: None)
  Receive Date: 20070327
  Receipt Date: 20070315
  Transmission Date: 20070707
  Serious: Yes (Other)
  Sender: FDA-Public Use
  Company Number: US-PFIZER INC-2006109126

PATIENT
  Sex: Female
  Weight: 55.3 kg

DRUGS (6)
  1. LYRICA [Suspect]
     Indication: POLYNEUROPATHY
     Route: 048
     Dates: start: 20060828, end: 20060903
  2. CORGARD [Concomitant]
  3. BENICAR [Concomitant]
     Dates: start: 20060701
  4. ESTRADIOL [Concomitant]
  5. CELEBREX [Concomitant]
  6. ALEVE [Concomitant]

REACTIONS (10)
  - ARTHRALGIA [None]
  - FEELING COLD [None]
  - GAIT DISTURBANCE [None]
  - JOINT STIFFNESS [None]
  - MALAISE [None]
  - NAUSEA [None]
  - PAIN [None]
  - PARAESTHESIA [None]
  - PARALYSIS [None]
  - SPINAL COLUMN STENOSIS [None]
